FAERS Safety Report 5532725-9 (Version None)
Quarter: 2007Q4

REPORT INFORMATION
  Report Type: 
  Country: None (occurrence: None)
  Receive Date: 20071128
  Receipt Date: 20071116
  Transmission Date: 20080405
  Serious: Yes (Other)
  Sender: FDA-Public Use
  Company Number: CHPA2007US12404

PATIENT
  Sex: Female

DRUGS (1)
  1. NODOZ (NCH)(CAFFEINE) CAPLET [Suspect]
     Dosage: 200 MG, ONCE/SINGLE, ORAL
     Route: 048
     Dates: start: 20071115, end: 20071115

REACTIONS (1)
  - HYPERSENSITIVITY [None]
